FAERS Safety Report 11959602 (Version 2)
Quarter: 2016Q1

REPORT INFORMATION
  Report Type: Spontaneous
  Country: US (occurrence: US)
  Receive Date: 20160126
  Receipt Date: 20160224
  Transmission Date: 20160526
  Serious: No
  Sender: FDA-Public Use
  Company Number: US-ASTRAZENECA-2016SE05406

PATIENT
  Sex: Male
  Weight: 82.1 kg

DRUGS (2)
  1. METFORMIN [Concomitant]
     Active Substance: METFORMIN HYDROCHLORIDE
  2. BYDUREON [Suspect]
     Active Substance: EXENATIDE
     Indication: TYPE 2 DIABETES MELLITUS
     Route: 058
     Dates: start: 20151218

REACTIONS (4)
  - Weight decreased [Unknown]
  - Injection site pruritus [Unknown]
  - Injection site nodule [Unknown]
  - Product solubility abnormal [Unknown]
